FAERS Safety Report 19468581 (Version 1)
Quarter: 2021Q2

REPORT INFORMATION
  Report Type: Other
  Country: US (occurrence: US)
  Receive Date: 20210628
  Receipt Date: 20210628
  Transmission Date: 20210717
  Serious: No
  Sender: FDA-Public Use
  Company Number: US-ROCHE-2853552

PATIENT
  Age: 40 Year
  Sex: Female
  Weight: 111.23 kg

DRUGS (3)
  1. VITAMIN D3 [Concomitant]
     Active Substance: CHOLECALCIFEROL
     Indication: VITAMIN D DEFICIENCY
     Route: 048
     Dates: start: 2011
  2. OCREVUS [Suspect]
     Active Substance: OCRELIZUMAB
     Indication: RELAPSING-REMITTING MULTIPLE SCLEROSIS
     Dosage: DATE OF TREATMENT: 11/SEP/2018, 11/MAR/2019, 23/SEP/2019, 27/MAR/2020, 08/OCT/2020, 14/MAY/2021
     Route: 042
     Dates: start: 20180830
  3. ELDERBERRY [Concomitant]
     Active Substance: HERBALS
     Route: 048
     Dates: start: 202003, end: 202101

REACTIONS (9)
  - Muscle spasms [Not Recovered/Not Resolved]
  - SARS-CoV-2 antibody test negative [Recovered/Resolved]
  - Weight increased [Not Recovered/Not Resolved]
  - Bradykinesia [Recovered/Resolved]
  - COVID-19 [Recovered/Resolved]
  - Lymphadenopathy [Unknown]
  - Arthralgia [Recovered/Resolved]
  - Infected cyst [Recovered/Resolved]
  - Fatigue [Not Recovered/Not Resolved]

NARRATIVE: CASE EVENT DATE: 20201211
